FAERS Safety Report 4266873-0 (Version None)
Quarter: 2004Q1

REPORT INFORMATION
  Report Type: 
  Country: None (occurrence: None)
  Receive Date: 20040108
  Receipt Date: 20040108
  Transmission Date: 20041129
  Serious: Yes (Other)
  Sender: FDA-Public Use
  Company Number: None

PATIENT
  Age: 41 Year
  Sex: Female
  Weight: 54.4316 kg

DRUGS (2)
  1. PLAVIX [Suspect]
     Indication: STENT PLACEMENT
     Dosage: 75 MG DAILY ORAL
     Route: 048
     Dates: start: 20031028, end: 20031109
  2. ASPIRIN [Suspect]
     Dosage: 100 MG DAILY ORAL
     Route: 048
     Dates: start: 20031028, end: 20031109

REACTIONS (1)
  - URTICARIA [None]
